FAERS Safety Report 18404716 (Version 1)
Quarter: 2020Q4

REPORT INFORMATION
  Report Type: Spontaneous
  Country: US (occurrence: US)
  Receive Date: 20201020
  Receipt Date: 20201020
  Transmission Date: 20210114
  Serious: Yes (Death)
  Sender: FDA-Public Use
  Company Number: None

PATIENT
  Age: 53 Year
  Sex: Female
  Weight: 49.5 kg

DRUGS (8)
  1. OPIATES [Concomitant]
     Active Substance: UNSPECIFIED INGREDIENT
  2. GEMCITABINE. [Suspect]
     Active Substance: GEMCITABINE
     Indication: CERVIX CARCINOMA
     Route: 042
  3. LASIX [Concomitant]
     Active Substance: FUROSEMIDE
  4. ATIVAN [Concomitant]
     Active Substance: LORAZEPAM
  5. KEFLEX [Concomitant]
     Active Substance: CEPHALEXIN
  6. POTASSIUM [Concomitant]
     Active Substance: POTASSIUM
  7. METOPROLOL. [Concomitant]
     Active Substance: METOPROLOL
  8. PREDNISONE. [Concomitant]
     Active Substance: PREDNISONE

REACTIONS (9)
  - Wound necrosis [None]
  - Interstitial lung disease [None]
  - Skin necrosis [None]
  - Condition aggravated [None]
  - Drug hypersensitivity [None]
  - Dyspnoea [None]
  - Pyrexia [None]
  - Subcutaneous abscess [None]
  - Pain [None]

NARRATIVE: CASE EVENT DATE: 20200910
